FAERS Safety Report 16652621 (Version 1)
Quarter: 2019Q3

REPORT INFORMATION
  Report Type: Spontaneous
  Country: US (occurrence: US)
  Receive Date: 20190731
  Receipt Date: 20190731
  Transmission Date: 20191004
  Serious: Yes (Hospitalization)
  Sender: FDA-Public Use
  Company Number: None

PATIENT
  Age: 72 Year
  Sex: Female

DRUGS (10)
  1. OXYCOD/APAP TAB 5-325 MG [Concomitant]
  2. PANTOPRAZOLE TAB 40 MG [Concomitant]
  3. ROSUVASTATIN TAB 10 MG [Concomitant]
  4. DOXYCYC MONO CAP 100 MG [Concomitant]
  5. HUMIRA [Suspect]
     Active Substance: ADALIMUMAB
     Indication: PRODUCT USED FOR UNKNOWN INDICATION
     Dosage: ?          OTHER FREQUENCY:EVERY WEEK;?
     Route: 058
     Dates: start: 20180111
  6. DOXYCYCL HYC TAB 100 MG [Concomitant]
  7. CLOTRIM/ BETA CRE DIPROP [Concomitant]
  8. CREON CAP 36000 UNIT [Concomitant]
  9. AMOX/K CLAV TAB 875-125 [Concomitant]
  10. ELIQUIS TAB 5 MG [Concomitant]

REACTIONS (1)
  - Furuncle [None]

NARRATIVE: CASE EVENT DATE: 20190711
